FAERS Safety Report 9552406 (Version 3)
Quarter: 2013Q4

REPORT INFORMATION
  Report Type: Report from Study
  Country: US (occurrence: US)
  Receive Date: 20130925
  Receipt Date: 20131030
  Transmission Date: 20140711
  Serious: Yes (Life-Threatening, Hospitalization, Other)
  Sender: FDA-Public Use
  Company Number: US-ASTELLAS-2013US009995

PATIENT
  Sex: Male
  Weight: 73 kg

DRUGS (16)
  1. BLINDED ERLOTINIB TABLET [Suspect]
     Indication: SQUAMOUS CELL CARCINOMA OF THE ORAL CAVITY
     Dosage: 150 MG, UID/QD
     Route: 048
     Dates: start: 20130905, end: 20130912
  2. DOCETAXEL [Suspect]
     Indication: SQUAMOUS CELL CARCINOMA OF THE ORAL CAVITY
     Dosage: UNK
     Route: 065
     Dates: start: 20130905, end: 20130912
  3. CISPLATIN [Suspect]
     Indication: SQUAMOUS CELL CARCINOMA OF THE ORAL CAVITY
     Dosage: UNK
     Route: 065
     Dates: start: 20130905, end: 20130912
  4. COUMADIN                           /00014802/ [Concomitant]
     Indication: PRODUCT USED FOR UNKNOWN INDICATION
     Dosage: UNK
     Route: 065
  5. ASPIRIN [Concomitant]
     Indication: CORONARY ARTERY DISEASE
     Dosage: 325 MG, UID/QD
     Route: 048
  6. PLAVIX [Concomitant]
     Indication: PRODUCT USED FOR UNKNOWN INDICATION
     Dosage: 75 MG, UID/QD
     Route: 048
  7. COREG [Concomitant]
     Indication: HYPERTENSION
     Dosage: 12.5 MG, UID/QD AM
     Route: 048
  8. COREG [Concomitant]
     Dosage: 6.25 MG, UID/QD PM
     Route: 048
  9. ALLEGRA [Concomitant]
     Indication: PRODUCT USED FOR UNKNOWN INDICATION
     Dosage: 30 MG, UID/QD
     Route: 048
  10. SYNTHROID [Concomitant]
     Indication: HYPOTHYROIDISM
     Dosage: 100 UG, UID/QD
     Route: 048
  11. LISINOPRIL [Concomitant]
     Indication: HYPERTENSION
     Dosage: 20 MG, UID/QD
     Route: 048
  12. ZOFRAN                             /00955301/ [Concomitant]
     Indication: NAUSEA
     Dosage: 8 MG, TID
     Route: 048
  13. ZOFRAN                             /00955301/ [Concomitant]
     Indication: VOMITING
  14. COMPAZINE                          /00013302/ [Concomitant]
     Indication: NAUSEA
     Dosage: 10 MG, Q6 HOURS
     Route: 048
  15. COMPAZINE                          /00013302/ [Concomitant]
     Indication: VOMITING
  16. LORTAB                             /00607101/ [Concomitant]
     Indication: PRODUCT USED FOR UNKNOWN INDICATION
     Dosage: 15 ML, Q4HOURS, PRN
     Route: 048

REACTIONS (27)
  - Off label use [Unknown]
  - Septic shock [Recovering/Resolving]
  - Hypovolaemia [Recovering/Resolving]
  - Anaemia [Recovering/Resolving]
  - Dehydration [Unknown]
  - Respiratory failure [Unknown]
  - Pleural effusion [Unknown]
  - Thrombosis [Unknown]
  - Atelectasis [Unknown]
  - Duodenal ulcer [Unknown]
  - Deep vein thrombosis [Unknown]
  - Hypokalaemia [Unknown]
  - Hypophosphataemia [Unknown]
  - Renal impairment [Unknown]
  - Stenotrophomonas infection [Unknown]
  - Pneumonia [Recovering/Resolving]
  - Erosive oesophagitis [Unknown]
  - Gastritis [Unknown]
  - Small intestinal haemorrhage [Recovering/Resolving]
  - Hypophagia [Unknown]
  - Dysphagia [Unknown]
  - Anxiety [Unknown]
  - Suicidal ideation [Recovered/Resolved]
  - Confusional state [Unknown]
  - Diarrhoea [Unknown]
  - Pneumonia aspiration [Recovering/Resolving]
  - Myocardial infarction [Unknown]
